FAERS Safety Report 8507944-X (Version None)
Quarter: 2012Q3

REPORT INFORMATION
  Report Type: 
  Country: None (occurrence: None)
  Receive Date: 20120709
  Receipt Date: 20120709
  Transmission Date: 20120928
  Serious: No
  Sender: FDA-Public Use
  Company Number: None

PATIENT

DRUGS (1)
  1. SURVANTA [Suspect]

REACTIONS (3)
  - OVERDOSE [None]
  - MEDICATION ERROR [None]
  - HYPOXIA [None]
